FAERS Safety Report 16135152 (Version 1)
Quarter: 2019Q1

REPORT INFORMATION
  Report Type: Spontaneous
  Country: US (occurrence: US)
  Receive Date: 20190329
  Receipt Date: 20190329
  Transmission Date: 20190418
  Serious: Yes (Other)
  Sender: FDA-Public Use
  Company Number: US-ABBVIE-19S-163-2720423-00

PATIENT
  Sex: Female

DRUGS (1)
  1. LUPRON [Suspect]
     Active Substance: LEUPROLIDE ACETATE
     Indication: UTERINE LEIOMYOMA
     Route: 058

REACTIONS (12)
  - Corneal dystrophy [Unknown]
  - Retinal degeneration [Unknown]
  - Genital atrophy [Unknown]
  - Tooth loss [Unknown]
  - Hair texture abnormal [Unknown]
  - Alopecia [Unknown]
  - Genital disorder female [Unknown]
  - Diabetes mellitus [Unknown]
  - Nerve compression [Unknown]
  - Pneumonia [Unknown]
  - Cataract [Unknown]
  - Intestinal fibrosis [Unknown]
